FAERS Safety Report 5518949-5 (Version None)
Quarter: 2007Q4

REPORT INFORMATION
  Report Type: 
  Country: None (occurrence: None)
  Receive Date: 20071114
  Receipt Date: 20071114
  Transmission Date: 20080405
  Serious: Yes (Other)
  Sender: FDA-Public Use
  Company Number: None

PATIENT
  Age: 35 Year
  Sex: Male
  Weight: 122.4712 kg

DRUGS (2)
  1. CHANTIX [Suspect]
     Indication: SMOKING CESSATION THERAPY
     Dosage: 1MG 2X DAY PO
     Route: 048
     Dates: start: 20070911, end: 20071111
  2. LISINOPRIL [Concomitant]

REACTIONS (2)
  - DEPRESSION [None]
  - INSOMNIA [None]
